FAERS Safety Report 19086406 (Version 2)
Quarter: 2021Q4

REPORT INFORMATION
  Report Type: Spontaneous
  Country: GB (occurrence: GB)
  Receive Date: 20210402
  Receipt Date: 20211102
  Transmission Date: 20220304
  Serious: Yes (Other)
  Sender: FDA-Public Use
  Company Number: None

PATIENT
  Age: 35 Year
  Sex: Male
  Weight: 73.93 kg

DRUGS (2)
  1. FINASTERIDE [Suspect]
     Active Substance: FINASTERIDE
     Indication: Ill-defined disorder
     Route: 048
     Dates: start: 20200201, end: 20210316
  2. FINASTERIDE [Suspect]
     Active Substance: FINASTERIDE
     Indication: Hair growth abnormal

REACTIONS (4)
  - Apathy [Not Recovered/Not Resolved]
  - Anger [Unknown]
  - Emotional distress [Unknown]
  - Depressed mood [Not Recovered/Not Resolved]

NARRATIVE: CASE EVENT DATE: 20201109
